FAERS Safety Report 23163883 (Version 5)
Quarter: 2024Q1

REPORT INFORMATION
  Report Type: Spontaneous
  Country: US (occurrence: US)
  Receive Date: 20231109
  Receipt Date: 20240308
  Transmission Date: 20240410
  Serious: No
  Sender: FDA-Public Use
  Company Number: US-PFIZER INC-PV202300178580

PATIENT
  Age: 54 Year
  Sex: Female

DRUGS (1)
  1. GENOTROPIN [Suspect]
     Active Substance: SOMATROPIN
     Indication: Blood growth hormone
     Dosage: 0.8 MG, DAILY

REACTIONS (3)
  - Drug ineffective [Unknown]
  - Intentional device misuse [Unknown]
  - Wrong technique in device usage process [Unknown]
